FAERS Safety Report 6803918-5 (Version None)
Quarter: 2010Q2

REPORT INFORMATION
  Report Type: 
  Country: None (occurrence: None)
  Receive Date: 20100628
  Receipt Date: 20060508
  Transmission Date: 20101027
  Serious: No
  Sender: FDA-Public Use
  Company Number: US-PFIZER INC-2006062379

PATIENT
  Sex: Female
  Weight: 95.25 kg

DRUGS (8)
  1. SUTENT [Suspect]
     Indication: RENAL CELL CARCINOMA
     Route: 048
     Dates: start: 20060329
  2. PRILOSEC [Suspect]
     Indication: GASTROOESOPHAGEAL REFLUX DISEASE
     Route: 048
  3. VERAPAMIL - SLOW RELEASE [Concomitant]
     Indication: HYPERTENSION
     Route: 065
     Dates: start: 19930101
  4. ATENOLOL [Concomitant]
     Indication: HYPERTENSION
     Route: 065
     Dates: start: 20040101
  5. ATENOLOL [Concomitant]
     Indication: HEART RATE INCREASED
  6. HYDROCHLOROTHIAZIDE [Concomitant]
     Indication: HYPERTENSION
     Route: 065
     Dates: start: 20000101
  7. LEVOTHROID [Concomitant]
     Indication: THYROID DISORDER
     Route: 065
     Dates: start: 20030101
  8. GLUCOVANCE [Concomitant]
     Indication: DIABETES MELLITUS
     Route: 065
     Dates: start: 20050101

REACTIONS (10)
  - AGEUSIA [None]
  - ASTHENIA [None]
  - DRUG INEFFECTIVE [None]
  - DRY MOUTH [None]
  - EAR DISORDER [None]
  - FATIGUE [None]
  - NASAL ULCER [None]
  - OESOPHAGEAL ULCER [None]
  - PYREXIA [None]
  - STOMATITIS [None]
